FAERS Safety Report 4879561-4 (Version None)
Quarter: 2006Q1

REPORT INFORMATION
  Report Type: 
  Country: None (occurrence: None)
  Receive Date: 20060113
  Receipt Date: 20060105
  Transmission Date: 20060701
  Serious: Yes (Disabling)
  Sender: FDA-Public Use
  Company Number: 2006CG00029

PATIENT
  Age: 68 Year
  Sex: Female
  Weight: 80 kg

DRUGS (12)
  1. CARBOCAINE [Suspect]
     Indication: LOCAL ANAESTHESIA
     Route: 053
     Dates: start: 20051107, end: 20051107
  2. VANCOMYCIN [Suspect]
     Route: 047
     Dates: start: 20051107, end: 20051107
  3. ATARAX [Suspect]
     Indication: PREMEDICATION
     Route: 048
     Dates: start: 20051107, end: 20051107
  4. AQSIA [Suspect]
     Route: 047
     Dates: start: 20051107, end: 20051107
  5. CILOXAN [Suspect]
     Indication: PREMEDICATION
     Route: 047
     Dates: start: 20051107, end: 20051107
  6. TROPICAMIDE [Suspect]
     Indication: PREMEDICATION
     Route: 047
     Dates: start: 20051107, end: 20051107
  7. ACULAR [Suspect]
     Indication: PREMEDICATION
     Route: 047
     Dates: start: 20051104, end: 20051104
  8. NEOSYNEPHRINE [Suspect]
     Indication: PREMEDICATION
     Route: 047
     Dates: start: 20051107, end: 20051107
  9. DIAMOX [Suspect]
     Indication: PREMEDICATION
     Dates: start: 20051107, end: 20051107
  10. AR40 LENS DEPOT [Suspect]
     Dates: start: 20051107
  11. DUOVISC [Suspect]
     Dates: start: 20051107, end: 20051107
  12. HEXANIOS [Suspect]
     Indication: STERILISATION
     Dates: start: 20051107, end: 20051107

REACTIONS (2)
  - CORNEAL OPACITY [None]
  - VISUAL ACUITY REDUCED [None]
